FAERS Safety Report 15327079 (Version 1)
Quarter: 2018Q3

REPORT INFORMATION
  Report Type: Spontaneous
  Country: US (occurrence: US)
  Receive Date: 20180823
  Receipt Date: 20180823
  Transmission Date: 20181010
  Serious: Yes (Other)
  Sender: FDA-Public Use
  Company Number: None

PATIENT
  Age: 79 Year
  Sex: Male
  Weight: 57.15 kg

DRUGS (13)
  1. ALFUZOSIN HCL 10MG SA TAB [Concomitant]
  2. FLUTICASONE PROP 50MCG 120D NASAL INHL [Concomitant]
  3. RIBAVIRIN. [Suspect]
     Active Substance: RIBAVIRIN
  4. FINASTERIDE 5MG TAB [Concomitant]
  5. ALBUTEROL 90MCG (CFC?F) 200D ORAL INHL [Concomitant]
  6. OMEPRAZOLE 20MG [Concomitant]
     Active Substance: OMEPRAZOLE
  7. BUDESONIDE 80/FORMOTER 4.5MCG 120D INH [Concomitant]
  8. GABAPENTIN 600MG TAB [Concomitant]
  9. SUCRALFATE 1GM TAB [Concomitant]
  10. FERROUS SO4 325MG TAB [Concomitant]
  11. PROPRANOLOL HCL 40MG TAB [Concomitant]
  12. SOFOSBUVIR [Suspect]
     Active Substance: SOFOSBUVIR
  13. HYDROCORTISONE 2.5% CREAM [Concomitant]
     Active Substance: HYDROCORTISONE

REACTIONS (5)
  - Cholelithiasis [None]
  - Hepatic mass [None]
  - Hepatomegaly [None]
  - Oesophageal squamous cell carcinoma [None]
  - Hepatic cirrhosis [None]
